FAERS Safety Report 14849485 (Version 2)
Quarter: 2018Q2

REPORT INFORMATION
  Report Type: Spontaneous
  Country: US (occurrence: US)
  Receive Date: 20180504
  Receipt Date: 20180608
  Transmission Date: 20180711
  Serious: No
  Sender: FDA-Public Use
  Company Number: US-B.I. PHARMACEUTICALS,INC./RIDGEFIELD-2018-BI-023544

PATIENT
  Age: 66 Year
  Sex: Female

DRUGS (5)
  1. ATORVASTATIN [Concomitant]
     Active Substance: ATORVASTATIN
     Indication: BLOOD CHOLESTEROL INCREASED
     Dosage: 1 TABLET DAILY;  FORM STRENGTH: 40MG; FORMULATION: TABLET
     Route: 048
     Dates: start: 2016
  2. SPIRIVA RESPIMAT [Suspect]
     Active Substance: TIOTROPIUM BROMIDE
     Indication: GASTROOESOPHAGEAL REFLUX DISEASE
     Dosage: FORM STRENGTH: 1.25 MCG; ADMINISTRATION CORRECT? YES ACTION(S) TAKEN WITH PRODUCT: DOSE NOT CHANGED
     Route: 055
     Dates: start: 20180411
  3. SPIRIVA RESPIMAT [Suspect]
     Active Substance: TIOTROPIUM BROMIDE
     Indication: ASTHMA
  4. WARFARIN [Concomitant]
     Active Substance: WARFARIN
     Indication: INTRACRANIAL ANEURYSM
     Dosage: 2.5MG 1 TABLET MONDAY, WEDNESDAY, THURSDAY, FRIDAY;  FORM STRENGTH: 2.5MG; FORMULATION: TABLET
     Route: 048
     Dates: start: 20110606
  5. WARFARIN [Concomitant]
     Active Substance: WARFARIN
     Dosage: 4MG 1 TABLET SATURDAY, SUNDAY;  FORM STRENGTH: 4MG; FORMULATION: TABLET
     Route: 048
     Dates: start: 20110603

REACTIONS (3)
  - Product use in unapproved indication [Unknown]
  - Cough [Not Recovered/Not Resolved]
  - Device malfunction [Unknown]

NARRATIVE: CASE EVENT DATE: 20180417
